FAERS Safety Report 6521763-5 (Version None)
Quarter: 2009Q4

REPORT INFORMATION
  Report Type: 
  Country: None (occurrence: None)
  Receive Date: 20091229
  Receipt Date: 20091229
  Transmission Date: 20100525
  Serious: Yes (Hospitalization)
  Sender: FDA-Public Use
  Company Number: None

PATIENT
  Sex: Female
  Weight: 85.7298 kg

DRUGS (8)
  1. CARBOPLATIN [Suspect]
     Indication: BREAST CANCER
     Dates: start: 20091203
  2. TAXOTERE [Concomitant]
  3. HERCEPTIN [Concomitant]
  4. DECADRON [Concomitant]
  5. PEPCID [Concomitant]
  6. BENADRL [Concomitant]
  7. ZOFRAN [Concomitant]
  8. NEULASTA [Concomitant]

REACTIONS (2)
  - HAEMATURIA [None]
  - SUPRAPUBIC PAIN [None]
